FAERS Safety Report 16656404 (Version 1)
Quarter: 2019Q3

REPORT INFORMATION
  Report Type: Other
  Country: US (occurrence: US)
  Receive Date: 20190801
  Receipt Date: 20190801
  Transmission Date: 20191004
  Serious: No
  Sender: FDA-Public Use
  Company Number: US-PACIRA-201700070

PATIENT
  Age: 52 Year
  Sex: Female

DRUGS (1)
  1. DEPOCYT [Suspect]
     Active Substance: CYTARABINE
     Indication: BREAST CANCER
     Dosage: 50 MG ONCE DAYS 1 AND 15 EVERY 28 DAYS
     Route: 037
     Dates: start: 20170522

REACTIONS (1)
  - Off label use [None]

NARRATIVE: CASE EVENT DATE: 20170522
